FAERS Safety Report 9805285 (Version 1)
Quarter: 2014Q1

REPORT INFORMATION
  Report Type: Spontaneous
  Country: GB (occurrence: None)
  Receive Date: 20140106
  Receipt Date: 20140106
  Transmission Date: 20141002
  Serious: Yes (Hospitalization)
  Sender: FDA-Public Use
  Company Number: AUR-APL-2013-10769

PATIENT
  Age: 18 Year
  Sex: Male
  Weight: 63 kg

DRUGS (3)
  1. NAPROXEN (NAPROXEN) [Suspect]
     Indication: JOINT INJURY
     Route: 048
     Dates: start: 20131125, end: 20131127
  2. CO-CODAMOL (PANADEINE CO) [Concomitant]
  3. PARACETAMOL (PARACETAMOL) [Concomitant]

REACTIONS (2)
  - Acute abdomen [None]
  - Gastric ulcer [None]
